FAERS Safety Report 5423686-1 (Version None)
Quarter: 2007Q3

REPORT INFORMATION
  Report Type: 
  Country: None (occurrence: None)
  Receive Date: 20070823
  Receipt Date: 20070817
  Transmission Date: 20080115
  Serious: Yes (Life-Threatening, Hospitalization)
  Sender: FDA-Public Use
  Company Number: B0484038A

PATIENT
  Age: 35 Year
  Sex: Female

DRUGS (8)
  1. AUGMENTIN '125' [Suspect]
     Dates: start: 20061128
  2. AMOXICILLINE + ACIDE CLAVULANIQUE [Suspect]
     Indication: ACUTE SINUSITIS
     Dosage: 500MG SINGLE DOSE
     Route: 048
     Dates: start: 20060921
  3. DAFALGAN [Concomitant]
     Indication: ACUTE SINUSITIS
     Route: 048
     Dates: start: 20060921
  4. RABEPRAZOLE SODIUM [Concomitant]
     Dosage: 20MG UNKNOWN
  5. MAALOX FAST BLOCKER [Concomitant]
  6. LEVONORGESTREL AND ETHINYL ESTRADIOL [Concomitant]
  7. DESLORATADINE [Concomitant]
  8. PARACETAMOL [Concomitant]

REACTIONS (12)
  - ANAPHYLACTIC SHOCK [None]
  - ANGIOEDEMA [None]
  - DIZZINESS [None]
  - FEELING HOT [None]
  - GENERALISED ERYTHEMA [None]
  - HYPOTENSION [None]
  - LOSS OF CONSCIOUSNESS [None]
  - MALAISE [None]
  - PAINFUL RESPIRATION [None]
  - PRURITUS [None]
  - TONGUE OEDEMA [None]
  - URTICARIA [None]
